FAERS Safety Report 9420067 (Version 3)
Quarter: 2013Q4

REPORT INFORMATION
  Report Type: Spontaneous
  Country: US (occurrence: US)
  Receive Date: 20130725
  Receipt Date: 20131008
  Transmission Date: 20140711
  Serious: Yes (Life-Threatening, Hospitalization, Disabling, Other)
  Sender: FDA-Public Use
  Company Number: US-GLAXOSMITHKLINE-A1034298A

PATIENT
  Age: 56 Year
  Sex: Male
  Weight: 49.5 kg

DRUGS (1)
  1. ADVAIR [Suspect]
     Indication: PRODUCT USED FOR UNKNOWN INDICATION
     Route: 055
     Dates: start: 20101118

REACTIONS (4)
  - Pneumonia [Recovered/Resolved]
  - Pneumonia bacterial [Recovered/Resolved]
  - Gastrointestinal disorder [Recovered/Resolved]
  - Mechanical ventilation [Recovered/Resolved]
